FAERS Safety Report 25503081 (Version 1)
Quarter: 2025Q3

REPORT INFORMATION
  Report Type: Other
  Country: CN (occurrence: CN)
  Receive Date: 20250702
  Receipt Date: 20250702
  Transmission Date: 20251021
  Serious: Yes (Hospitalization, Other)
  Sender: QILU PHARMACEUTICAL
  Company Number: CN-QILU PHARMACEUTICAL CO.LTD.-QLU-000140-2025

PATIENT
  Age: 56 Year
  Sex: Male

DRUGS (6)
  1. TENOFOVIR DISOPROXIL FUMARATE [Suspect]
     Active Substance: TENOFOVIR DISOPROXIL FUMARATE
     Indication: Acquired immunodeficiency syndrome
     Dosage: 300 MG ONCE A DAY
     Route: 048
     Dates: start: 20250411, end: 20250608
  2. LAMIVUDINE [Suspect]
     Active Substance: LAMIVUDINE
     Indication: Acquired immunodeficiency syndrome
     Dosage: 0.300 G PER DAY
     Route: 048
     Dates: start: 20250411, end: 20250608
  3. AINUOVIRINE [Suspect]
     Active Substance: AINUOVIRINE
     Indication: Acquired immunodeficiency syndrome
     Dosage: 0.150 G PER DAY
     Route: 048
     Dates: start: 20250411, end: 20250608
  4. CLOPIDOGREL BISULFATE [Suspect]
     Active Substance: CLOPIDOGREL BISULFATE
     Indication: Antiplatelet therapy
     Dosage: 75 MG PER DAY
     Route: 048
     Dates: start: 20250411, end: 20250608
  5. ASPIRIN [Suspect]
     Active Substance: ASPIRIN
     Indication: Antiplatelet therapy
     Dosage: 100 MG PER DAY
     Route: 048
     Dates: start: 20250411, end: 20250609
  6. NIFURATEL [Concomitant]
     Active Substance: NIFURATEL
     Indication: Product used for unknown indication
     Route: 065

REACTIONS (1)
  - Gastrointestinal haemorrhage [Recovered/Resolved]

NARRATIVE: CASE EVENT DATE: 20250609
